FAERS Safety Report 18427357 (Version 2)
Quarter: 2020Q4

REPORT INFORMATION
  Report Type: Spontaneous
  Country: DE (occurrence: DE)
  Receive Date: 20201026
  Receipt Date: 20201230
  Transmission Date: 20210114
  Serious: Yes (Hospitalization, Other)
  Sender: FDA-Public Use
  Company Number: DE-SHIRE-DE202033795

PATIENT

DRUGS (7)
  1. ZONISAMIDE. [Suspect]
     Active Substance: ZONISAMIDE
     Indication: SUICIDAL IDEATION
     Route: 048
  2. ATORVASTATIN [Suspect]
     Active Substance: ATORVASTATIN
     Indication: SUICIDAL IDEATION
     Route: 065
  3. RAMIPRIL. [Suspect]
     Active Substance: RAMIPRIL
     Indication: SUICIDAL IDEATION
     Route: 065
  4. GUANFACINA [Suspect]
     Active Substance: GUANFACINE
     Indication: SUICIDAL IDEATION
     Route: 048
  5. TORASEMID AL [Suspect]
     Active Substance: TORSEMIDE
     Indication: SUICIDAL IDEATION
     Route: 048
  6. INTUNIV [Suspect]
     Active Substance: GUANFACINE HYDROCHLORIDE
  7. L-THYROXIN [Suspect]
     Active Substance: LEVOTHYROXINE SODIUM
     Indication: SUICIDAL IDEATION
     Route: 065

REACTIONS (10)
  - Arrhythmia [None]
  - Depressed level of consciousness [Unknown]
  - Hypothermia [Unknown]
  - Toxicity to various agents [Unknown]
  - Intentional overdose [Unknown]
  - General physical health deterioration [Unknown]
  - Lactic acidosis [Unknown]
  - Vomiting [Unknown]
  - Hypotension [Unknown]
  - Nausea [Unknown]

NARRATIVE: CASE EVENT DATE: 20200619
